FAERS Safety Report 16353708 (Version 1)
Quarter: 2019Q2

REPORT INFORMATION
  Report Type: Spontaneous
  Country: FR (occurrence: FR)
  Receive Date: 20190524
  Receipt Date: 20190524
  Transmission Date: 20190711
  Serious: Yes (Congenital Anomaly, Other)
  Sender: FDA-Public Use
  Company Number: FR-PFIZER INC-2019215457

PATIENT
  Age: 19 Year
  Sex: Male

DRUGS (4)
  1. GABAPENTIN. [Suspect]
     Active Substance: GABAPENTIN
     Dosage: UNK
     Route: 064
  2. ALEPSAL [PHENOBARBITAL] [Suspect]
     Active Substance: PHENOBARBITAL
     Dosage: UNK
     Route: 064
  3. DEPAKINE [VALPROATE SODIUM] [Suspect]
     Active Substance: VALPROATE SODIUM
     Indication: EPILEPSY
     Dosage: UNK
     Route: 064
  4. SPECIAFOLDINE [Concomitant]
     Active Substance: FOLIC ACID
     Dosage: UNK

REACTIONS (18)
  - Mental disorder [Unknown]
  - Dysphagia [Unknown]
  - Hypotonia [Unknown]
  - Dysmorphism [Unknown]
  - Behaviour disorder [Unknown]
  - Camptodactyly congenital [Unknown]
  - Hypospadias [Unknown]
  - Maternal exposure during pregnancy [Unknown]
  - Developmental delay [Unknown]
  - Abnormal labour affecting foetus [Unknown]
  - Hypermobility syndrome [Unknown]
  - Scoliosis [Unknown]
  - Gastrooesophageal reflux disease [Unknown]
  - Autism spectrum disorder [Unknown]
  - Language disorder [Unknown]
  - Kyphosis congenital [Unknown]
  - Sleep disorder [Unknown]
  - Motor dysfunction [Unknown]
